FAERS Safety Report 23722592 (Version 2)
Quarter: 2024Q3

REPORT INFORMATION
  Report Type: Report from Study
  Country: CA (occurrence: CA)
  Receive Date: 20240409
  Receipt Date: 20240704
  Transmission Date: 20241017
  Serious: Yes (Other)
  Sender: JOHNSON AND JOHNSON
  Company Number: CA-JNJFOC-20221024064

PATIENT
  Age: 14 Year
  Sex: Male
  Weight: 46.9 kg

DRUGS (6)
  1. REMICADE [Suspect]
     Active Substance: INFLIXIMAB
     Indication: Crohn^s disease
     Route: 041
     Dates: start: 20221018
  2. REMICADE [Suspect]
     Active Substance: INFLIXIMAB
     Route: 041
     Dates: start: 2022
  3. REMICADE [Suspect]
     Active Substance: INFLIXIMAB
     Dosage: REQUESTED 300MG WEEK 0, 2, 6, THEN Q6 WEEKS
     Route: 041
     Dates: start: 2022
  4. REMICADE [Suspect]
     Active Substance: INFLIXIMAB
     Dosage: PATIENT RECEIVED GREATER THAN 5 MG/KG BUT LESS THAN 10 MG/KG DOSE
     Route: 041
     Dates: start: 2022
  5. REMICADE [Suspect]
     Active Substance: INFLIXIMAB
     Route: 041
  6. REMICADE [Suspect]
     Active Substance: INFLIXIMAB
     Route: 041

REACTIONS (4)
  - Intestinal obstruction [Recovered/Resolved]
  - Fistula discharge [Unknown]
  - Anal fistula [Unknown]
  - Off label use [Unknown]

NARRATIVE: CASE EVENT DATE: 20220101
